FAERS Safety Report 5585850-0 (Version None)
Quarter: 2008Q1

REPORT INFORMATION
  Report Type: 
  Country: None (occurrence: None)
  Receive Date: 20080104
  Receipt Date: 20071214
  Transmission Date: 20080703
  Serious: Yes (Death)
  Sender: FDA-Public Use
  Company Number: POMP-11218

PATIENT
  Age: 69 Year
  Sex: Male
  Weight: 64 kg

DRUGS (5)
  1. MYOZYME [Suspect]
     Indication: GLYCOGEN STORAGE DISEASE TYPE II
     Dosage: 1380 MG, Q2W, INTRAVENOUS
     Route: 042
     Dates: start: 20060718, end: 20070921
  2. AMOIR [Concomitant]
  3. TRANDOLAPRIL [Concomitant]
  4. DEBRIDAT [Concomitant]
  5. LACTULOSE [Concomitant]

REACTIONS (2)
  - CARDIO-RESPIRATORY ARREST [None]
  - RESPIRATORY FAILURE [None]
